FAERS Safety Report 25627638 (Version 1)
Quarter: 2025Q3

REPORT INFORMATION
  Report Type: Other
  Country: GB (occurrence: GB)
  Receive Date: 20250731
  Receipt Date: 20250731
  Transmission Date: 20251021
  Serious: Yes (Death, Other)
  Sender: MACLEODS
  Company Number: GB-AUROBINDO-AUR-APL-2019-000651

PATIENT

DRUGS (7)
  1. SILDENAFIL [Suspect]
     Active Substance: SILDENAFIL
     Indication: Pulmonary arterial hypertension
     Dosage: 20 MILLIGRAM, 3 TIMES A DAY
     Route: 065
     Dates: start: 201612
  2. AMLODIPINE [Suspect]
     Active Substance: AMLODIPINE BESYLATE
     Indication: Pulmonary arterial hypertension
     Dosage: 20 MG, QD
     Route: 065
     Dates: start: 201403
  3. AMLODIPINE [Suspect]
     Active Substance: AMLODIPINE BESYLATE
     Dosage: 20 MG, QD
     Route: 065
     Dates: start: 201412, end: 201509
  4. AMLODIPINE [Suspect]
     Active Substance: AMLODIPINE BESYLATE
     Dosage: 20 MG, QD
     Route: 065
     Dates: start: 201612
  5. BOSENTAN [Suspect]
     Active Substance: BOSENTAN
     Indication: Pulmonary arterial hypertension
     Dosage: 250 MILLIGRAM, ONCE A DAY (125 MG, BID)
     Route: 065
     Dates: start: 201612
  6. WARFARIN [Concomitant]
     Active Substance: WARFARIN
     Indication: Anticoagulant therapy
     Route: 065
  7. UNSPECIFIED INGREDIENT [Concomitant]
     Active Substance: UNSPECIFIED INGREDIENT
     Indication: Anticoagulant therapy
     Route: 065

REACTIONS (4)
  - Death [Fatal]
  - Condition aggravated [Unknown]
  - Drug ineffective [Unknown]
  - Maternal exposure during pregnancy [Unknown]
